FAERS Safety Report 4456271-9 (Version None)
Quarter: 2004Q3

REPORT INFORMATION
  Report Type: 
  Country: None (occurrence: None)
  Receive Date: 20040917
  Receipt Date: 20040827
  Transmission Date: 20050211
  Serious: Yes (Death)
  Sender: FDA-Public Use
  Company Number: USA040875383

PATIENT
  Age: 12 Year
  Sex: Male
  Weight: 108 kg

DRUGS (10)
  1. XIGRIS [Suspect]
     Indication: SEPSIS
     Dosage: 24 UG/KG/HR
     Dates: start: 20040727, end: 20040701
  2. VANCOMYCIN [Concomitant]
  3. INSULIN [Concomitant]
  4. ALBUMIN (HUMAN) [Concomitant]
  5. VASOPRESSIN INJECTION [Concomitant]
  6. HEPARIN [Concomitant]
  7. PHENYLEPHRINE [Concomitant]
  8. FENTANYL [Concomitant]
  9. SEPTRA [Concomitant]
  10. FLUCONAZOLE [Concomitant]

REACTIONS (1)
  - DEATH [None]
